FAERS Safety Report 5182639-1 (Version None)
Quarter: 2006Q4

REPORT INFORMATION
  Report Type: 
  Country: None (occurrence: None)
  Receive Date: 20061220
  Receipt Date: 20061212
  Transmission Date: 20070319
  Serious: Yes (Life-Threatening, Hospitalization)
  Sender: FDA-Public Use
  Company Number: JP-JNJFOC-20061203517

PATIENT
  Age: 33 Year
  Sex: Female

DRUGS (7)
  1. RISPERDAL [Suspect]
     Indication: INSOMNIA
     Route: 048
  2. RISPERDAL [Suspect]
     Indication: HALLUCINATION, AUDITORY
     Route: 048
  3. SEROQUEL [Suspect]
     Indication: INSOMNIA
     Route: 048
  4. SEROQUEL [Suspect]
     Indication: HALLUCINATION, AUDITORY
     Route: 048
  5. VEGETAMIN-B [Suspect]
     Indication: INSOMNIA
     Route: 048
  6. LORAZEPAM [Suspect]
     Indication: TENSION
     Route: 048
  7. BROTIZOLAM [Suspect]
     Indication: INSOMNIA

REACTIONS (3)
  - ANURIA [None]
  - DIALYSIS [None]
  - RHABDOMYOLYSIS [None]
